FAERS Safety Report 6490214-1 (Version None)
Quarter: 2009Q4

REPORT INFORMATION
  Report Type: 
  Country: None (occurrence: None)
  Receive Date: 20091211
  Receipt Date: 20091201
  Transmission Date: 20100525
  Serious: Yes (Disabling)
  Sender: FDA-Public Use
  Company Number: US-SANOFI-AVENTIS-2009SA006325

PATIENT
  Age: 61 Year
  Sex: Male
  Weight: 84.09 kg

DRUGS (3)
  1. PLAVIX [Suspect]
     Indication: THROMBOSIS PROPHYLAXIS
     Route: 048
     Dates: start: 20090801
  2. ANDROGEL [Suspect]
     Dates: start: 20090801, end: 20091001
  3. ZOCOR [Suspect]
     Dates: start: 19990101, end: 20091001

REACTIONS (2)
  - MUSCLE CONTRACTIONS INVOLUNTARY [None]
  - MYALGIA [None]
